FAERS Safety Report 6360712-X (Version None)
Quarter: 2009Q3

REPORT INFORMATION
  Report Type: 
  Country: None (occurrence: None)
  Receive Date: 20090918
  Receipt Date: 20090910
  Transmission Date: 20100115
  Serious: Yes (Hospitalization)
  Sender: FDA-Public Use
  Company Number: CA-BIOGENIDEC-2009BI029127

PATIENT
  Age: 37 Year
  Sex: Female

DRUGS (2)
  1. AVONEX [Suspect]
     Indication: MULTIPLE SCLEROSIS
     Route: 030
     Dates: start: 20071203, end: 20071212
  2. AVONEX [Suspect]
     Route: 030
     Dates: start: 20090401

REACTIONS (5)
  - BLEEDING TIME PROLONGED [None]
  - CERVIX CARCINOMA [None]
  - DEPRESSION [None]
  - MUSCULOSKELETAL PAIN [None]
  - PAIN IN EXTREMITY [None]
